FAERS Safety Report 19139762 (Version 1)
Quarter: 2021Q2

REPORT INFORMATION
  Report Type: Spontaneous
  Country: US (occurrence: US)
  Receive Date: 20210415
  Receipt Date: 20210415
  Transmission Date: 20210717
  Serious: Yes (Life-Threatening, Hospitalization)
  Sender: FDA-Public Use
  Company Number: None

PATIENT
  Age: 55 Year
  Sex: Female
  Weight: 78.75 kg

DRUGS (24)
  1. BYDUREON BCISE [Suspect]
     Active Substance: EXENATIDE
     Indication: TYPE 2 DIABETES MELLITUS
     Dosage: ?          OTHER FREQUENCY:WEEKLY;?
     Route: 058
  2. LORATADINE. [Concomitant]
     Active Substance: LORATADINE
  3. VITAMIN D3 [Concomitant]
     Active Substance: CHOLECALCIFEROL
  4. MAGNESIUM CITRATE. [Concomitant]
     Active Substance: MAGNESIUM CITRATE
  5. PROBIOTIC [Concomitant]
     Active Substance: PROBIOTICS NOS
  6. DIGOXIN. [Concomitant]
     Active Substance: DIGOXIN
  7. DIAZEPAM. [Concomitant]
     Active Substance: DIAZEPAM
  8. COMPAZINE [Concomitant]
     Active Substance: PROCHLORPERAZINE MALEATE
  9. FISH OIL [Concomitant]
     Active Substance: FISH OIL
  10. BUTALB/APAP/CAFF (FIORICET) [Concomitant]
  11. TURMERIC [Concomitant]
     Active Substance: HERBALS\TURMERIC
  12. OMEPRAZOLE. [Concomitant]
     Active Substance: OMEPRAZOLE
  13. TRAMADOL. [Concomitant]
     Active Substance: TRAMADOL
  14. ROPINIROLE HCL [Concomitant]
     Active Substance: ROPINIROLE HYDROCHLORIDE
  15. NORVASC [Concomitant]
     Active Substance: AMLODIPINE BESYLATE
  16. CELEBREX [Concomitant]
     Active Substance: CELECOXIB
  17. LANTUS [Concomitant]
     Active Substance: INSULIN GLARGINE
  18. VITAMIN C [Concomitant]
     Active Substance: ASCORBIC ACID
  19. ATORVASTATIN [Concomitant]
     Active Substance: ATORVASTATIN
  20. METOPROLOL. [Concomitant]
     Active Substance: METOPROLOL
  21. CYCLOBEZAPRINE [Concomitant]
  22. ZOLPIDEM [Concomitant]
     Active Substance: ZOLPIDEM TARTRATE
  23. MULTIVITAMIN [Concomitant]
     Active Substance: VITAMINS
  24. CINNAMON. [Concomitant]
     Active Substance: CINNAMON

REACTIONS (3)
  - Sepsis [None]
  - Fournier^s gangrene [None]
  - Necrotising fasciitis [None]

NARRATIVE: CASE EVENT DATE: 20200423
